FAERS Safety Report 4349112-1 (Version None)
Quarter: 2004Q2

REPORT INFORMATION
  Report Type: 
  Country: None (occurrence: None)
  Receive Date: 20040427
  Receipt Date: 20040427
  Transmission Date: 20050107
  Serious: Yes (Life-Threatening)
  Sender: FDA-Public Use
  Company Number: None

PATIENT
  Sex: Female
  Weight: 29 kg

DRUGS (7)
  1. OPTIRAY 320 [Suspect]
     Dosage: ONCE INTRAVENOUS
     Route: 042
     Dates: start: 20040415, end: 20040415
  2. RITONAVIR [Concomitant]
  3. FLUCONAZOLE [Concomitant]
  4. ABACAVIR [Concomitant]
  5. EMTRIVA [Concomitant]
  6. AZITHROMYCIN [Concomitant]
  7. ROFECOXIB [Concomitant]

REACTIONS (3)
  - BLOOD POTASSIUM INCREASED [None]
  - OLIGURIA [None]
  - RENAL FAILURE ACUTE [None]
